FAERS Safety Report 9698685 (Version 2)
Quarter: 2013Q4

REPORT INFORMATION
  Report Type: Spontaneous
  Country: NL (occurrence: NL)
  Receive Date: 20131120
  Receipt Date: 20131120
  Transmission Date: 20140711
  Serious: Yes (Other)
  Sender: FDA-Public Use
  Company Number: NL-BAYER-2013-114912

PATIENT
  Age: 39 Year
  Sex: Female

DRUGS (1)
  1. YASMIN [Suspect]
     Dosage: UNK
     Dates: start: 201309

REACTIONS (5)
  - Mood swings [None]
  - Ecchymosis [Recovering/Resolving]
  - Poor peripheral circulation [None]
  - Vulvovaginal dryness [None]
  - Libido decreased [None]
